FAERS Safety Report 9144238 (Version 2)
Quarter: 2013Q2

REPORT INFORMATION
  Report Type: Spontaneous
  Country: JP (occurrence: JP)
  Receive Date: 20130306
  Receipt Date: 20130624
  Transmission Date: 20140414
  Serious: Yes (Hospitalization, Other)
  Sender: FDA-Public Use
  Company Number: PHHY2013JP020372

PATIENT
  Age: 84 Year
  Sex: Female

DRUGS (5)
  1. PREDNISOLONE [Suspect]
     Indication: MYASTHENIA GRAVIS
     Dosage: 5 MG EVERY OTHER DAY
  2. PREDNISOLONE [Suspect]
     Dosage: 100 MG EVERY OTHER DAY
  3. PREDNISOLONE [Suspect]
     Dosage: 80 MG EVERY OTHER DAY
  4. PREDNISOLONE [Suspect]
     Dosage: 20 MG EVERY OTHER DAY
  5. CICLOSPORIN [Suspect]
     Indication: DYSPHAGIA
     Dosage: 3 MG, UNK

REACTIONS (4)
  - Depression [Recovered/Resolved]
  - Hypertension [Recovered/Resolved]
  - Blood creatinine increased [Recovered/Resolved]
  - Drug ineffective [Recovered/Resolved]
